FAERS Safety Report 13977251 (Version 6)
Quarter: 2019Q3

REPORT INFORMATION
  Report Type: Report from Study
  Country: CA (occurrence: CA)
  Receive Date: 20170915
  Receipt Date: 20190807
  Transmission Date: 20191004
  Serious: Yes (Hospitalization, Other)
  Sender: FDA-Public Use
  Company Number: PHHY2016CA067704

PATIENT
  Age: 51 Year
  Sex: Male

DRUGS (3)
  1. SANDOSTATIN [Suspect]
     Active Substance: OCTREOTIDE ACETATE
     Indication: NEUROENDOCRINE TUMOUR
     Dosage: UNK, TEST DOSE
     Route: 058
     Dates: start: 20130528, end: 20130528
  2. SANDOSTATIN LAR DEPOT [Suspect]
     Active Substance: OCTREOTIDE ACETATE
     Indication: CARCINOID TUMOUR
     Dosage: 30 MG, QMO (EVERY 4 WEEKS)
     Route: 030
     Dates: start: 20130606
  3. SANDOSTATIN LAR DEPOT [Suspect]
     Active Substance: OCTREOTIDE ACETATE
     Indication: NEUROENDOCRINE TUMOUR

REACTIONS (17)
  - Small intestine carcinoma [Unknown]
  - Blood pressure diastolic increased [Unknown]
  - Gait disturbance [Unknown]
  - Diarrhoea [Recovering/Resolving]
  - Nephrolithiasis [Unknown]
  - Blood pressure systolic increased [Unknown]
  - Pain in extremity [Unknown]
  - Renal cancer [Unknown]
  - Second primary malignancy [Unknown]
  - Feeling abnormal [Unknown]
  - Pain [Recovered/Resolved]
  - Abdominal discomfort [Unknown]
  - Sleep disorder [Unknown]
  - Dizziness [Unknown]
  - Cerebrovascular accident [Unknown]
  - Hormone level abnormal [Unknown]
  - Limb discomfort [Unknown]

NARRATIVE: CASE EVENT DATE: 20160512
